FAERS Safety Report 11787148 (Version 3)
Quarter: 2018Q3

REPORT INFORMATION
  Report Type: Spontaneous
  Country: IT (occurrence: IT)
  Receive Date: 20151130
  Receipt Date: 20180706
  Transmission Date: 20181010
  Serious: Yes (Life-Threatening, Hospitalization)
  Sender: FDA-Public Use
  Company Number: IT-BAYER-2015-469712

PATIENT
  Age: 72 Year
  Sex: Female

DRUGS (18)
  1. PANTOPRAZOLE [Suspect]
     Active Substance: PANTOPRAZOLE
     Dosage: 20 MG, QD
     Route: 048
  2. LORAZEPAM. [Suspect]
     Active Substance: LORAZEPAM
     Dosage: 20 GTT, UNK
  3. OLANZAPINE. [Suspect]
     Active Substance: OLANZAPINE
     Dosage: 5 MG, HS
     Dates: start: 201503
  4. OLANZAPINE. [Suspect]
     Active Substance: OLANZAPINE
     Dosage: 2.5 MG, HS
     Dates: start: 201501, end: 201503
  5. QUETIAPINE. [Suspect]
     Active Substance: QUETIAPINE
     Dosage: DAILY DOSE 25 MG
     Route: 048
  6. TRITTICO [Suspect]
     Active Substance: TRAZODONE HYDROCHLORIDE
     Dosage: 13 GTT, HS
     Dates: start: 201501, end: 201507
  7. LEVOTHYROXINE SODIUM. [Suspect]
     Active Substance: LEVOTHYROXINE SODIUM
  8. BRILIQUE [Suspect]
     Active Substance: TICAGRELOR
     Dosage: 90 MG, BID
     Route: 048
  9. RIVOTRIL [Suspect]
     Active Substance: CLONAZEPAM
     Dosage: 18 GTT, QD
  10. TRITTICO [Suspect]
     Active Substance: TRAZODONE HYDROCHLORIDE
     Dosage: 60 MG/ML, 15 GTT, AT NIGHT
  11. LOPRESSOR [Suspect]
     Active Substance: METOPROLOL TARTRATE
     Dosage: DAILY DOSE 25 MG
     Route: 048
  12. RIVOTRIL [Suspect]
     Active Substance: CLONAZEPAM
     Dosage: 1.8 MG, 28 GTT, AT NIGHT
  13. RIVOTRIL [Suspect]
     Active Substance: CLONAZEPAM
     Dosage: 15 GTT, QD
  14. CARDIOASPIRIN [Suspect]
     Active Substance: ASPIRIN
     Dosage: UNK, QD
  15. ATORVASTATIN CALCIUM. [Suspect]
     Active Substance: ATORVASTATIN CALCIUM
     Dosage: 40 MG, QD
     Route: 048
  16. LORAZEPAM. [Suspect]
     Active Substance: LORAZEPAM
     Dosage: DAILY DOSE 68 GTT
  17. TRITTICO [Suspect]
     Active Substance: TRAZODONE HYDROCHLORIDE
     Dosage: 10 GTT, UNK
  18. TRIAZOLAM. [Suspect]
     Active Substance: TRIAZOLAM
     Dosage: 0.25 MG, HS

REACTIONS (12)
  - Discomfort [None]
  - Fatigue [Unknown]
  - Suicide attempt [Unknown]
  - Epistaxis [Unknown]
  - Electrocardiogram T wave inversion [Unknown]
  - Myocardial ischaemia [Unknown]
  - Hypothyroidism [Unknown]
  - Weight increased [Unknown]
  - Electrocardiogram QT prolonged [Unknown]
  - Feeling cold [Unknown]
  - Malaise [Unknown]
  - Dyspnoea [Unknown]

NARRATIVE: CASE EVENT DATE: 201507
